FAERS Safety Report 9286916 (Version 1)
Quarter: 2013Q2

REPORT INFORMATION
  Report Type: Spontaneous
  Country: US (occurrence: US)
  Receive Date: 20130513
  Receipt Date: 20130513
  Transmission Date: 20140414
  Serious: No
  Sender: FDA-Public Use
  Company Number: US-ASTRAZENECA-2013SE30864

PATIENT
  Age: 62 Year
  Sex: Male

DRUGS (4)
  1. NEXIUM [Suspect]
     Indication: PROPHYLAXIS
     Route: 048
  2. BYETTA [Concomitant]
  3. METFORMIN [Concomitant]
  4. ACTOS [Concomitant]

REACTIONS (1)
  - Hyperglycaemia [Unknown]
